FAERS Safety Report 5513681-6 (Version None)
Quarter: 2007Q4

REPORT INFORMATION
  Report Type: 
  Country: None (occurrence: None)
  Receive Date: 20071108
  Receipt Date: 20071023
  Transmission Date: 20080405
  Serious: Yes (Hospitalization)
  Sender: FDA-Public Use
  Company Number: JPKYO-S-20070045

PATIENT
  Age: 79 Year
  Sex: Male

DRUGS (1)
  1. NAVELBINE [Suspect]
     Indication: LUNG NEOPLASM MALIGNANT

REACTIONS (1)
  - INTERSTITIAL LUNG DISEASE [None]
